FAERS Safety Report 6774439-3 (Version None)
Quarter: 2010Q2

REPORT INFORMATION
  Report Type: 
  Country: None (occurrence: None)
  Receive Date: 20100617
  Receipt Date: 20100602
  Transmission Date: 20101027
  Serious: Yes (Other)
  Sender: FDA-Public Use
  Company Number: PHHY2010GB20029

PATIENT
  Sex: Female

DRUGS (6)
  1. EXJADE [Suspect]
     Dosage: 22 MG/KG, UNK
  2. PREDNISOLONE [Concomitant]
     Dosage: 10 MG
     Route: 048
  3. FOLIC ACID [Concomitant]
     Dosage: 5 MG
  4. PENICILLIN ^GRUNENTHAL^ [Concomitant]
     Dosage: 250 MG, BID
  5. HYDROXYCHLOROQUINE [Concomitant]
     Dosage: 500 MG EVERY OTHER DAYS
  6. RANITIDINE [Concomitant]
     Dosage: 25 MG, BID

REACTIONS (5)
  - CONCOMITANT DISEASE PROGRESSION [None]
  - LIP SWELLING [None]
  - PRURITUS [None]
  - RASH [None]
  - SYSTEMIC LUPUS ERYTHEMATOSUS [None]
